FAERS Safety Report 7999541-X (Version None)
Quarter: 2011Q4

REPORT INFORMATION
  Report Type: 
  Country: None (occurrence: None)
  Receive Date: 20111221
  Receipt Date: 20111216
  Transmission Date: 20120403
  Serious: No
  Sender: FDA-Public Use
  Company Number: US-PFIZER INC-2011277308

PATIENT
  Sex: Female
  Weight: 59.4 kg

DRUGS (3)
  1. IBUPROFEN (ADVIL) [Suspect]
     Indication: ARTHRITIS
     Dosage: UNK
     Dates: start: 20110101, end: 20111101
  2. LASIX [Concomitant]
     Indication: FLUID RETENTION
     Dosage: UNK
     Route: 048
  3. AMARYL [Concomitant]
     Dosage: UNK
     Route: 048

REACTIONS (2)
  - HALLUCINATION [None]
  - DYSPEPSIA [None]
